FAERS Safety Report 5289797-9 (Version None)
Quarter: 2007Q2

REPORT INFORMATION
  Report Type: 
  Country: None (occurrence: None)
  Receive Date: 20070406
  Receipt Date: 20070329
  Transmission Date: 20071010
  Serious: Yes (Other)
  Sender: FDA-Public Use
  Company Number: DE-SANOFI-SYNTHELABO-A01200703453

PATIENT
  Age: 70 Year
  Sex: Male

DRUGS (4)
  1. INEGY [Concomitant]
     Indication: PROPHYLAXIS
     Dosage: UNK
     Route: 065
  2. INEGY [Concomitant]
     Indication: VASCULAR BYPASS GRAFT
     Dosage: UNK
     Route: 065
  3. ISCOVER [Suspect]
     Indication: PROPHYLAXIS
     Dosage: UNK
     Route: 048
  4. ISCOVER [Suspect]
     Indication: VASCULAR BYPASS GRAFT
     Dosage: UNK
     Route: 048

REACTIONS (3)
  - MUSCULAR DYSTROPHY [None]
  - MYALGIA [None]
  - WEIGHT DECREASED [None]
